FAERS Safety Report 4481617-5 (Version None)
Quarter: 2004Q3

REPORT INFORMATION
  Report Type: 
  Country: None (occurrence: None)
  Receive Date: 20040921
  Receipt Date: 20040429
  Transmission Date: 20050211
  Serious: Yes (Death)
  Sender: FDA-Public Use
  Company Number: 167-20785-04050030(0)

PATIENT
  Sex: 0

DRUGS (1)
  1. THALOMID [Suspect]

REACTIONS (1)
  - DEATH [None]
